FAERS Safety Report 16465458 (Version 1)
Quarter: 2019Q2

REPORT INFORMATION
  Report Type: Report from Study
  Country: US (occurrence: US)
  Receive Date: 20190621
  Receipt Date: 20190621
  Transmission Date: 20190711
  Serious: Yes (Other)
  Sender: FDA-Public Use
  Company Number: US-MYLANLABS-2019M1055840

PATIENT
  Age: 20 Year
  Sex: Male
  Weight: 75 kg

DRUGS (1)
  1. AMNESTEEM [Suspect]
     Active Substance: ISOTRETINOIN
     Indication: PRODUCT USED FOR UNKNOWN INDICATION
     Dosage: UNK
     Dates: start: 20190205, end: 20190607

REACTIONS (9)
  - Suicidal ideation [Not Recovered/Not Resolved]
  - Headache [Unknown]
  - Fatigue [Unknown]
  - Depression [Unknown]
  - Epistaxis [Unknown]
  - Arthralgia [Unknown]
  - Mood altered [Unknown]
  - Myalgia [Unknown]
  - Adverse event [Unknown]

NARRATIVE: CASE EVENT DATE: 2019
